FAERS Safety Report 18642064 (Version 1)
Quarter: 2020Q4

REPORT INFORMATION
  Report Type: Spontaneous
  Country: GB (occurrence: GB)
  Receive Date: 20201221
  Receipt Date: 20201221
  Transmission Date: 20210114
  Serious: Yes (Other)
  Sender: FDA-Public Use
  Company Number: GB-ACCORD-211625

PATIENT
  Age: 80 Year
  Sex: Female
  Weight: 63.5 kg

DRUGS (10)
  1. CARBOCISTEINE [Concomitant]
     Active Substance: CARBOCYSTEINE
     Dosage: TWICE A DAY
  2. ETANERCEPT [Concomitant]
     Active Substance: ETANERCEPT
     Dosage: THURSDAY
  3. BISOPROLOL [Concomitant]
     Active Substance: BISOPROLOL
     Dosage: IN THE MORNING
  4. BISOPROLOL [Concomitant]
     Active Substance: BISOPROLOL
     Dosage: IN THE EVENING
  5. PARACETAMOL [Concomitant]
     Active Substance: ACETAMINOPHEN
  6. FUROSEMIDE. [Suspect]
     Active Substance: FUROSEMIDE
     Indication: DYSPNOEA
  7. PREDNISOLONE. [Concomitant]
     Active Substance: PREDNISOLONE
  8. OMEPRAZOLE. [Concomitant]
     Active Substance: OMEPRAZOLE
  9. APIXABAN [Concomitant]
     Active Substance: APIXABAN
     Dosage: MORNING AND EVENING
  10. ADCAL-D3 [Concomitant]
     Active Substance: CALCIUM CARBONATE\CHOLECALCIFEROL

REACTIONS (4)
  - Off label use [Unknown]
  - Decreased appetite [Unknown]
  - Confusional state [Unknown]
  - Fatigue [Recovered/Resolved]
